FAERS Safety Report 5786647-9 (Version None)
Quarter: 2008Q2

REPORT INFORMATION
  Report Type: 
  Country: None (occurrence: None)
  Receive Date: 20080624
  Receipt Date: 20080612
  Transmission Date: 20081010
  Serious: Yes (Other)
  Sender: FDA-Public Use
  Company Number: US-PFIZER INC-2008051852

PATIENT
  Sex: Female
  Weight: 61.3 kg

DRUGS (4)
  1. CHANTIX [Suspect]
     Indication: SMOKING CESSATION THERAPY
     Dates: start: 20080518, end: 20080101
  2. DRUG, UNSPECIFIED [Interacting]
  3. EFFEXOR XR [Concomitant]
  4. LAMICTAL [Concomitant]

REACTIONS (2)
  - DRUG INTERACTION [None]
  - SUICIDAL IDEATION [None]
